FAERS Safety Report 9283918 (Version 1)
Quarter: 2013Q2

REPORT INFORMATION
  Report Type: Spontaneous
  Country: US (occurrence: US)
  Receive Date: 20130510
  Receipt Date: 20130510
  Transmission Date: 20140414
  Serious: No
  Sender: FDA-Public Use
  Company Number: US-COVIDIEN/TYCO HEALTHCARE/MALLINCKRODT-T201301802

PATIENT
  Age: 45 Year
  Sex: Female
  Weight: 86.17 kg

DRUGS (8)
  1. FENTANYL TRANSDERMAL SYSTEM [Suspect]
     Indication: PAIN
     Dosage: 100 MCG/HR, Q 48 HOURS
     Dates: start: 2012
  2. FENTANYL TRANSDERMAL SYSTEM [Suspect]
     Dosage: 25 MCG/HR, Q 48 HOURS
     Dates: start: 2012
  3. ROXICODONE [Concomitant]
     Indication: BREAKTHROUGH PAIN
     Dosage: 20 MG, UNK
  4. METHADONE [Concomitant]
     Indication: PAIN
     Dosage: 5 MG, 3 QD
  5. ADDERALL [Concomitant]
     Indication: ATTENTION DEFICIT/HYPERACTIVITY DISORDER
     Dosage: 25 MG, QD
  6. LEXAPRO [Concomitant]
     Indication: DEPRESSION
     Dosage: UNK
  7. NEXIUM                             /01479302/ [Concomitant]
     Indication: GASTROOESOPHAGEAL REFLUX DISEASE
     Dosage: UNK
  8. ASTHMA INHALER [Concomitant]
     Dosage: UNK

REACTIONS (3)
  - Pain [Unknown]
  - Crying [Unknown]
  - Drug ineffective [Unknown]
